FAERS Safety Report 7837509 (Version 3)
Quarter: 2017Q1

REPORT INFORMATION
  Report Type: Spontaneous
  Country: NL (occurrence: NL)
  Receive Date: 20110302
  Receipt Date: 20170131
  Transmission Date: 20170429
  Serious: Yes (Death, Other)
  Sender: FDA-Public Use
  Company Number: PHHY2011NL15104

PATIENT
  Age: 26 Year
  Sex: Female

DRUGS (3)
  1. CICLOSPORIN [Suspect]
     Active Substance: CYCLOSPORINE
     Indication: APLASTIC ANAEMIA
     Dosage: 5 MG/KG, BID
     Route: 065
  2. TOBRAMYCIN. [Suspect]
     Active Substance: TOBRAMYCIN
     Indication: NEUTROPENIA
     Route: 065
  3. METHYLPREDNISOLONE. [Suspect]
     Active Substance: METHYLPREDNISOLONE
     Indication: APLASTIC ANAEMIA
     Route: 065

REACTIONS (26)
  - Staphylococcal bacteraemia [Fatal]
  - Diarrhoea [Unknown]
  - Pancytopenia [Unknown]
  - Hypoxia [Unknown]
  - Sepsis [Fatal]
  - Thrombocytopenia [Unknown]
  - Neutropenia [Unknown]
  - Cerebral infarction [Fatal]
  - Headache [Unknown]
  - Dyspnoea [Unknown]
  - Cerebral haemorrhage [Fatal]
  - Gingival bleeding [Unknown]
  - Coma scale abnormal [Fatal]
  - Pupils unequal [Fatal]
  - Rash maculo-papular [Unknown]
  - Drug ineffective [Unknown]
  - Vomiting [Unknown]
  - Pneumothorax [Unknown]
  - Intrauterine infection [Fatal]
  - Premature labour [Unknown]
  - Pneumonia [Unknown]
  - Exposure during pregnancy [Unknown]
  - Product use issue [Unknown]
  - Pyrexia [Fatal]
  - Hypotension [Unknown]
  - Induced labour [Unknown]
